FAERS Safety Report 19146365 (Version 1)
Quarter: 2021Q2

REPORT INFORMATION
  Report Type: Spontaneous
  Country: DE (occurrence: DE)
  Receive Date: 20210416
  Receipt Date: 20210416
  Transmission Date: 20210717
  Serious: Yes (Other)
  Sender: FDA-Public Use
  Company Number: DE-TEVA-2021-DE-1901032

PATIENT
  Age: 6 Decade
  Sex: Female
  Weight: 88 kg

DRUGS (1)
  1. ESOMEPRAZOL ABZ 40 MG MAGENSAFTRESISTENTE HARTKAPSELN [Suspect]
     Active Substance: ESOMEPRAZOLE MAGNESIUM
     Dosage: 40 MILLIGRAM DAILY;
     Route: 065
     Dates: start: 202012

REACTIONS (2)
  - Heart rate increased [Not Recovered/Not Resolved]
  - Arrhythmia [Not Recovered/Not Resolved]

NARRATIVE: CASE EVENT DATE: 202102
